FAERS Safety Report 7265952-3 (Version None)
Quarter: 2011Q1

REPORT INFORMATION
  Report Type: 
  Country: None (occurrence: None)
  Receive Date: 20110131
  Receipt Date: 20110125
  Transmission Date: 20110831
  Serious: Yes (Disabling, Other)
  Sender: FDA-Public Use
  Company Number: US-PFIZER INC-2010121711

PATIENT
  Sex: Female

DRUGS (2)
  1. CHANTIX [Suspect]
     Indication: SMOKING CESSATION THERAPY
     Dosage: 0.5 MG, UNK
     Route: 048
     Dates: start: 20060901
  2. CHANTIX [Suspect]
     Dosage: STARTING MONTH PACK, CONTINUING MONTH PACK
     Route: 048
     Dates: start: 20070917, end: 20071022

REACTIONS (14)
  - BIPOLAR DISORDER [None]
  - RESTLESS LEGS SYNDROME [None]
  - NIGHTMARE [None]
  - LOSS OF CONSCIOUSNESS [None]
  - SLEEP APNOEA SYNDROME [None]
  - DISTURBANCE IN ATTENTION [None]
  - THINKING ABNORMAL [None]
  - DEPRESSION [None]
  - MEMORY IMPAIRMENT [None]
  - MENTAL DISORDER [None]
  - INSOMNIA [None]
  - AGEUSIA [None]
  - ANXIETY [None]
  - SUICIDAL IDEATION [None]
